FAERS Safety Report 5577369-8 (Version None)
Quarter: 2007Q4

REPORT INFORMATION
  Report Type: 
  Country: None (occurrence: None)
  Receive Date: 20071228
  Receipt Date: 20071218
  Transmission Date: 20080405
  Serious: Yes (Hospitalization)
  Sender: FDA-Public Use
  Company Number: US-PFIZER INC-2007106663

PATIENT
  Age: 81 Year
  Sex: Female

DRUGS (9)
  1. XALATAN [Suspect]
     Indication: GLAUCOMA
  2. LIPITOR [Concomitant]
  3. ANTIHYPERTENSIVES [Concomitant]
  4. DETROL LA [Concomitant]
  5. ACTONEL [Concomitant]
  6. VITAMIN D [Concomitant]
  7. VITAMINS [Concomitant]
  8. CALCIUM [Concomitant]
  9. SYNTHROID [Concomitant]

REACTIONS (1)
  - DYSPEPSIA [None]
